FAERS Safety Report 9466155 (Version 1)
Quarter: 2013Q3

REPORT INFORMATION
  Report Type: Spontaneous
  Country: US (occurrence: None)
  Receive Date: 20130816
  Receipt Date: 20130816
  Transmission Date: 20140515
  Serious: Yes (Disabling)
  Sender: FDA-Public Use
  Company Number: None

PATIENT
  Age: 32 Year
  Sex: Female
  Weight: 45.36 kg

DRUGS (2)
  1. LEVAQUIN [Suspect]
     Indication: PAIN
     Dosage: 10 DAYS WORTH  --  TAKEN BY MOUTH
     Route: 048
  2. LEVAQUIN [Suspect]
     Indication: LETHARGY
     Dosage: 10 DAYS WORTH  --  TAKEN BY MOUTH
     Route: 048

REACTIONS (5)
  - Arthralgia [None]
  - Tendon disorder [None]
  - White blood cell count decreased [None]
  - Antinuclear antibody positive [None]
  - Hypoaesthesia [None]
